FAERS Safety Report 24744370 (Version 1)
Quarter: 2024Q4

REPORT INFORMATION
  Report Type: Report from Study
  Country: US (occurrence: US)
  Receive Date: 20241217
  Receipt Date: 20241217
  Transmission Date: 20250115
  Serious: Yes (Other)
  Sender: BAYER HEALTHCARE PHARMACEUTICALS INC.
  Company Number: US-BAYER-2024A175670

PATIENT
  Age: 34 Year
  Sex: Male
  Weight: 85.2 kg

DRUGS (8)
  1. MOXIFLOXACIN [Suspect]
     Active Substance: MOXIFLOXACIN
     Indication: Tuberculosis
     Route: 048
  2. RIFAMPIN [Concomitant]
     Active Substance: RIFAMPIN
  3. ISONIAZID [Concomitant]
     Active Substance: ISONIAZID
  4. PYRAZINAMIDE [Concomitant]
     Active Substance: PYRAZINAMIDE
  5. ETHAMBUTOL HYDROCHLORIDE [Concomitant]
     Active Substance: ETHAMBUTOL HYDROCHLORIDE
  6. PREDNISOLONE [Concomitant]
     Active Substance: PREDNISOLONE
     Dosage: 120 MG, QD
  7. PREDNISOLONE [Concomitant]
     Active Substance: PREDNISOLONE
     Dosage: 130 MG, QD
  8. LINEZOLID [Concomitant]
     Active Substance: LINEZOLID

REACTIONS (3)
  - Meningitis tuberculous [None]
  - Product use in unapproved indication [None]
  - Paradoxical drug reaction [None]
